FAERS Safety Report 14010241 (Version 1)
Quarter: 2017Q3

REPORT INFORMATION
  Report Type: Spontaneous
  Country: JP (occurrence: JP)
  Receive Date: 20170926
  Receipt Date: 20170926
  Transmission Date: 20171128
  Serious: Yes (Death, Life-Threatening, Hospitalization, Other)
  Sender: FDA-Public Use
  Company Number: JP-CIPLA LTD.-2017JP17369

PATIENT

DRUGS (5)
  1. OXALIPLATIN. [Suspect]
     Active Substance: OXALIPLATIN
     Indication: RECTAL CANCER RECURRENT
     Dosage: 85 MG/M2, UNK
     Route: 065
     Dates: start: 201505
  2. FLUOROURACIL. [Suspect]
     Active Substance: FLUOROURACIL
     Dosage: 2400 MG/M2 CONTINUOUS INFUSION EVERY 2 WEEKS ONCE, UNK
     Route: 042
     Dates: start: 201505
  3. CALCIUM LEVOFOLINATE [Suspect]
     Active Substance: LEVOLEUCOVORIN CALCIUM
     Indication: METASTASES TO LYMPH NODES
     Dosage: 200 MG/M2, UNK
     Route: 065
     Dates: start: 201505
  4. PANITUMUMAB [Suspect]
     Active Substance: PANITUMUMAB
     Indication: RECTAL CANCER RECURRENT
     Dosage: 6 MG/KG, UNK
     Route: 065
     Dates: start: 201505
  5. FLUOROURACIL. [Suspect]
     Active Substance: FLUOROURACIL
     Indication: RECTAL CANCER RECURRENT
     Dosage: 400 MG/M2, UNK
     Route: 042
     Dates: start: 201505

REACTIONS (3)
  - Bone marrow failure [Unknown]
  - Cardio-respiratory arrest [Fatal]
  - Thrombotic thrombocytopenic purpura [Fatal]
